FAERS Safety Report 4902364-9 (Version None)
Quarter: 2006Q1

REPORT INFORMATION
  Report Type: 
  Country: None (occurrence: None)
  Receive Date: 20060202
  Receipt Date: 20060124
  Transmission Date: 20060701
  Serious: Yes (Hospitalization)
  Sender: FDA-Public Use
  Company Number: 13198

PATIENT
  Age: 57 Year
  Sex: Female

DRUGS (1)
  1. BLEOMYCIN [Suspect]
     Indication: KAPOSI'S SARCOMA
     Dosage: 15 MG WEEKLY INJ
     Dates: start: 19990511

REACTIONS (1)
  - DRUG ERUPTION [None]
